FAERS Safety Report 18064725 (Version 1)
Quarter: 2020Q3

REPORT INFORMATION
  Report Type: Spontaneous
  Country: NL (occurrence: NL)
  Receive Date: 20200724
  Receipt Date: 20200724
  Transmission Date: 20201103
  Serious: Yes (Other)
  Sender: FDA-Public Use
  Company Number: NL-TEVA-2018-NL-872513

PATIENT
  Age: 43 Year
  Sex: Female
  Weight: 56 kg

DRUGS (1)
  1. FLUOXETINE [Suspect]
     Active Substance: FLUOXETINE HYDROCHLORIDE
     Indication: TENSION
     Dosage: EXTRA INFO: 20 MG, THERAPY END DATE : ASKU
     Route: 065
     Dates: start: 2015

REACTIONS (3)
  - Hallucination [Recovering/Resolving]
  - Anxiety [Recovered/Resolved]
  - Drug interaction [Unknown]

NARRATIVE: CASE EVENT DATE: 20151201
